FAERS Safety Report 20318544 (Version 1)
Quarter: 2022Q1

REPORT INFORMATION
  Report Type: Other
  Country: US (occurrence: None)
  Receive Date: 20220110
  Receipt Date: 20220110
  Transmission Date: 20220423
  Serious: Yes (Death)
  Sender: FDA-Public Use
  Company Number: US-ROCHE-2993744

PATIENT
  Age: 44 Year
  Sex: Female

DRUGS (5)
  1. CAPECITABINE [Suspect]
     Active Substance: CAPECITABINE
     Indication: Neoplasm malignant
     Route: 065
  2. BEVACIZUMAB [Suspect]
     Active Substance: BEVACIZUMAB
     Indication: Neoplasm malignant
     Route: 065
  3. LEUCOVORIN [Suspect]
     Active Substance: LEUCOVORIN
     Indication: Neoplasm malignant
     Route: 065
  4. FLUOROURACIL [Suspect]
     Active Substance: FLUOROURACIL
     Indication: Neoplasm malignant
     Route: 065
  5. OXALIPLATIN [Suspect]
     Active Substance: OXALIPLATIN
     Indication: Neoplasm malignant
     Route: 065

REACTIONS (2)
  - Disease progression [Fatal]
  - Drug ineffective [Unknown]
